FAERS Safety Report 21772878 (Version 8)
Quarter: 2025Q4

REPORT INFORMATION
  Report Type: Report from Study
  Country: US (occurrence: US)
  Receive Date: 20221223
  Receipt Date: 20251008
  Transmission Date: 20260118
  Serious: Yes (Hospitalization, Other)
  Sender: TAKEDA
  Company Number: US-TAKEDA-2014BAX022201

PATIENT
  Age: 56 Year
  Sex: Male
  Weight: 87 kg

DRUGS (7)
  1. HUMAN IMMUNOGLOBULIN G [Suspect]
     Active Substance: HUMAN IMMUNOGLOBULIN G
     Indication: Immunodeficiency common variable
     Dosage: 10 GRAM, 1/WEEK
     Dates: end: 201304
  2. HUMAN IMMUNOGLOBULIN G [Suspect]
     Active Substance: HUMAN IMMUNOGLOBULIN G
     Indication: Primary immunodeficiency syndrome
     Dosage: 12.5 GRAM, 1/WEEK
     Dates: start: 201304
  3. HUMAN IMMUNOGLOBULIN G [Suspect]
     Active Substance: HUMAN IMMUNOGLOBULIN G
     Dosage: 12.5 GRAM, 1/WEEK
  4. CUVITRU [Suspect]
     Active Substance: HUMAN IMMUNOGLOBULIN G
     Indication: Immunodeficiency common variable
     Dosage: UNK
  5. SYMBICORT [Concomitant]
     Active Substance: BUDESONIDE\FORMOTEROL FUMARATE DIHYDRATE
     Indication: Chronic obstructive pulmonary disease
     Dosage: UNK UNK, QID
  6. SPIRIVA [Concomitant]
     Active Substance: TIOTROPIUM BROMIDE MONOHYDRATE
     Indication: Chronic obstructive pulmonary disease
     Dosage: UNK UNK, QD
  7. BROVANA [Concomitant]
     Active Substance: ARFORMOTEROL TARTRATE
     Indication: Chronic obstructive pulmonary disease
     Dosage: UNK

REACTIONS (11)
  - Dyspnoea [Unknown]
  - Chronic obstructive pulmonary disease [Unknown]
  - Pneumonia [Recovering/Resolving]
  - Infection [Unknown]
  - Infusion site scar [Unknown]
  - Fear of injection [Unknown]
  - Feeling abnormal [Unknown]
  - Infusion site pain [Unknown]
  - Proctitis [Unknown]
  - Hypertension [Not Recovered/Not Resolved]
  - Prostatomegaly [Unknown]

NARRATIVE: CASE EVENT DATE: 20140101
